FAERS Safety Report 8332884-9 (Version None)
Quarter: 2012Q1

REPORT INFORMATION
  Report Type: 
  Country: None (occurrence: None)
  Receive Date: 20120327
  Receipt Date: 20100315
  Transmission Date: 20120608
  Serious: Yes (Other)
  Sender: FDA-Public Use
  Company Number: PHHY2010US10667

PATIENT
  Age: 35 Year
  Sex: Female
  Weight: 54 kg

DRUGS (13)
  1. TRAMADOL HYDROCHLORIDE [Concomitant]
  2. FLUARIX (INFLUENZA VIRUS VACCINE POLYVALENT) [Concomitant]
  3. HYDROCODONE BITARTRATE + ACETAMINOPHEN [Concomitant]
  4. LIDOCAINE [Concomitant]
  5. ACETAMINOPHEN [Concomitant]
  6. ACETAMINOPHEN [Concomitant]
  7. INFLUENZA VACCINE (INFLUENZA VACCINE) [Concomitant]
  8. RANITIDINE HYDROCHLORIDE [Concomitant]
  9. GLEEVEC [Suspect]
     Indication: CHRONIC MYELOID LEUKAEMIA
     Dosage: 400 MG, QD, ORAL
     Route: 048
     Dates: start: 20091103, end: 20100106
  10. ULTRAM [Concomitant]
  11. ETODOLAC [Concomitant]
  12. IBUPROFEN [Concomitant]
  13. LORAZEPAM [Concomitant]

REACTIONS (6)
  - MUSCLE SPASMS [None]
  - DISTURBANCE IN ATTENTION [None]
  - BONE PAIN [None]
  - AMNESIA [None]
  - HEADACHE [None]
  - FATIGUE [None]
